FAERS Safety Report 7881051-1 (Version None)
Quarter: 2011Q4

REPORT INFORMATION
  Report Type: 
  Country: None (occurrence: None)
  Receive Date: 20111101
  Receipt Date: 20110602
  Transmission Date: 20120403
  Serious: No
  Sender: FDA-Public Use
  Company Number: US-AMGEN-USASP2011028570

PATIENT
  Age: 28 Year
  Sex: Female

DRUGS (2)
  1. TREXALL [Concomitant]
     Dosage: 4 MG, UNK
     Dates: start: 20110201
  2. ENBREL [Suspect]
     Indication: RHEUMATOID ARTHRITIS
     Dosage: 50 MG, QWK
     Dates: start: 20110207

REACTIONS (4)
  - FATIGUE [None]
  - ALOPECIA [None]
  - MIGRAINE [None]
  - ASTHENIA [None]
